FAERS Safety Report 5036954-2 (Version None)
Quarter: 2006Q2

REPORT INFORMATION
  Report Type: 
  Country: None (occurrence: None)
  Receive Date: 20060613
  Receipt Date: 20060328
  Transmission Date: 20061013
  Serious: Yes (Hospitalization, Other)
  Sender: FDA-Public Use
  Company Number: US-JNJFOC-20060307422

PATIENT
  Age: 32 Year
  Sex: Female

DRUGS (1)
  1. ORTHO EVRA [Suspect]
     Indication: CONTRACEPTION
     Dosage: 1 DOSE(S), 3 IN 4 WEEK
     Dates: start: 20030201, end: 20030301

REACTIONS (3)
  - CEREBRAL THROMBOSIS [None]
  - HYPERCOAGULATION [None]
  - PULMONARY EMBOLISM [None]
